FAERS Safety Report 17709470 (Version 1)
Quarter: 2020Q2

REPORT INFORMATION
  Report Type: Spontaneous
  Country: CN (occurrence: CN)
  Receive Date: 20200427
  Receipt Date: 20200427
  Transmission Date: 20200714
  Serious: Yes (Other)
  Sender: FDA-Public Use
  Company Number: CN-MTPC-MTPC2020-0050734

PATIENT
  Age: 67 Year
  Sex: Male

DRUGS (3)
  1. EDARAVONE [Suspect]
     Active Substance: EDARAVONE
     Indication: CEREBRAL INFARCTION
     Dosage: 30 MG, 0.5-DAY INTERVAL
     Route: 041
  2. XUESHUANTONG INJECTION [Interacting]
     Active Substance: HERBALS\PANAX NOTOGINSENG ROOT EXTRACT
     Indication: CEREBRAL INFARCTION
     Dosage: 450 MILLIGRAM, QD
     Route: 041
  3. WARFARIN POTASSIUM [Interacting]
     Active Substance: WARFARIN POTASSIUM
     Indication: CEREBRAL INFARCTION
     Dosage: 3 MILLIGRAM, QD
     Route: 048

REACTIONS (1)
  - Ecchymosis [Recovering/Resolving]
